FAERS Safety Report 20629650 (Version 1)
Quarter: 2022Q1

REPORT INFORMATION
  Report Type: Spontaneous
  Country: PH (occurrence: PH)
  Receive Date: 20220323
  Receipt Date: 20220323
  Transmission Date: 20220424
  Serious: Yes (Hospitalization)
  Sender: FDA-Public Use
  Company Number: PH-BoehringerIngelheim-2022-BI-159376

PATIENT

DRUGS (1)
  1. ALTEPLASE [Suspect]
     Active Substance: ALTEPLASE
     Indication: Product used for unknown indication
     Route: 065

REACTIONS (12)
  - Ventricular drainage [Unknown]
  - Cerebral haemorrhage [Unknown]
  - Acute respiratory distress syndrome [Unknown]
  - Pneumonia [Recovered/Resolved]
  - Pulmonary embolism [Unknown]
  - Thrombolysis [Unknown]
  - Septic shock [Unknown]
  - Haemorrhagic infarction [Unknown]
  - Ventricular drainage [Unknown]
  - COVID-19 [Unknown]
  - Haematoma [Unknown]
  - Hydrocephalus [Unknown]

NARRATIVE: CASE EVENT DATE: 20211013
